FAERS Safety Report 4728097-X (Version None)
Quarter: 2005Q3

REPORT INFORMATION
  Report Type: 
  Country: None (occurrence: None)
  Receive Date: 20050729
  Receipt Date: 20050418
  Transmission Date: 20060218
  Serious: Yes (Other)
  Sender: FDA-Public Use
  Company Number: PHBS2005BE05463

PATIENT
  Age: 56 Year
  Sex: Female

DRUGS (9)
  1. ZOMETA [Suspect]
     Indication: BREAST CANCER
     Dosage: UNK, UNK
     Route: 042
     Dates: start: 20030101
  2. AREDIA [Suspect]
     Route: 042
     Dates: start: 20010801, end: 20021201
  3. AROMASIN [Concomitant]
     Route: 065
     Dates: start: 20010516
  4. TAXOTERE [Concomitant]
     Dosage: 6 CYCLES
     Route: 065
     Dates: start: 20010801
  5. NAVELBINE [Concomitant]
     Dosage: 6 CYCLES
     Route: 065
     Dates: start: 20020712, end: 20021123
  6. FLUOROURACIL [Concomitant]
     Dosage: 6 CYCLES
     Route: 065
     Dates: start: 20020712, end: 20021123
  7. FLUVESTRANT [Concomitant]
     Route: 065
     Dates: start: 20021119
  8. XELODA [Concomitant]
     Route: 065
     Dates: start: 20030225
  9. CAELYX [Concomitant]
     Route: 065
     Dates: start: 20040811, end: 20041229

REACTIONS (8)
  - ASEPTIC NECROSIS BONE [None]
  - CHRONIC SINUSITIS [None]
  - METASTASES TO LIVER [None]
  - MOUTH ULCERATION [None]
  - TOOTH ABSCESS [None]
  - TOOTH EXTRACTION [None]
  - TOOTH INFECTION [None]
  - WOUND DEBRIDEMENT [None]
